FAERS Safety Report 5830807-5 (Version None)
Quarter: 2008Q3

REPORT INFORMATION
  Report Type: 
  Country: None (occurrence: None)
  Receive Date: 20080801
  Receipt Date: 20071203
  Transmission Date: 20090109
  Serious: No
  Sender: FDA-Public Use
  Company Number: US-BRISTOL-MYERS SQUIBB COMPANY-14002307

PATIENT
  Sex: Female

DRUGS (6)
  1. COUMADIN [Suspect]
  2. ATENOLOL [Suspect]
  3. NEXIUM [Suspect]
  4. ENABLEX [Suspect]
  5. CRESTOR [Suspect]
  6. ACTONEL [Suspect]

REACTIONS (1)
  - HERPES ZOSTER [None]
